FAERS Safety Report 6506011-4 (Version None)
Quarter: 2009Q4

REPORT INFORMATION
  Report Type: 
  Country: None (occurrence: None)
  Receive Date: 20091218
  Receipt Date: 20091207
  Transmission Date: 20100525
  Serious: Yes (Other)
  Sender: FDA-Public Use
  Company Number: GB-PFIZER INC-2009307135

PATIENT
  Sex: Female

DRUGS (2)
  1. SERTRALINE HCL [Suspect]
     Dosage: 50 MG, 1X/DAY
     Dates: start: 20070301, end: 20080401
  2. SERTRALINE HCL [Suspect]
     Dosage: 50 MG, UNK
     Dates: end: 20090501

REACTIONS (1)
  - PSORIASIS [None]
